FAERS Safety Report 5992930-4 (Version None)
Quarter: 2008Q4

REPORT INFORMATION
  Report Type: 
  Country: None (occurrence: None)
  Receive Date: 20081210
  Receipt Date: 20081126
  Transmission Date: 20090506
  Serious: No
  Sender: FDA-Public Use
  Company Number: C-08-0085-W

PATIENT
  Age: 55 Year
  Sex: Male

DRUGS (8)
  1. ROPINIROLE HYDROCHLORIDE [Suspect]
     Indication: RESTLESS LEGS SYNDROME
     Dosage: ONE P.O. H.S.
     Route: 048
     Dates: start: 20081101
  2. DIOVAN HCT [Concomitant]
  3. METFORMIN HCL [Concomitant]
  4. ZOLPIDEM [Concomitant]
  5. OMEPRAZOLE [Concomitant]
  6. CELEBREX [Concomitant]
  7. GLUCOSAMINE/CHONDROITIN [Concomitant]
  8. MULTI-VITAMINS [Concomitant]

REACTIONS (4)
  - DRUG INTERACTION [None]
  - MEDICATION ERROR [None]
  - NO THERAPEUTIC RESPONSE [None]
  - PRODUCT QUALITY ISSUE [None]
